FAERS Safety Report 26075337 (Version 1)
Quarter: 2025Q4

REPORT INFORMATION
  Report Type: Spontaneous
  Country: GB (occurrence: GB)
  Receive Date: 20251121
  Receipt Date: 20251121
  Transmission Date: 20260117
  Serious: Yes (Disabling, Other)
  Sender: ELI LILLY AND COMPANY
  Company Number: None

PATIENT
  Age: 33 Year
  Sex: Female

DRUGS (1)
  1. TADALAFIL [Suspect]
     Active Substance: TADALAFIL
     Indication: Raynaud^s phenomenon
     Dosage: 5 MG, UNKNOWN
     Route: 065
     Dates: start: 20251110

REACTIONS (7)
  - Ear pain [Not Recovered/Not Resolved]
  - Deafness [Not Recovered/Not Resolved]
  - Inner ear disorder [Unknown]
  - Tinnitus [Not Recovered/Not Resolved]
  - Migraine [Recovering/Resolving]
  - Headache [Recovering/Resolving]
  - Off label use [Unknown]

NARRATIVE: CASE EVENT DATE: 20251110
